FAERS Safety Report 4810823-2 (Version None)
Quarter: 2005Q4

REPORT INFORMATION
  Report Type: 
  Country: None (occurrence: None)
  Receive Date: 20051024
  Receipt Date: 20051011
  Transmission Date: 20060501
  Serious: Yes (Other)
  Sender: FDA-Public Use
  Company Number: 2005141168

PATIENT
  Age: 82 Year
  Sex: Female
  Weight: 48.9885 kg

DRUGS (2)
  1. LIPITOR [Suspect]
     Indication: BLOOD CHOLESTEROL INCREASED
     Dosage: 1 IN 1 D, ORAL  FEW YEARS AGO
     Route: 048
  2. MONOPRIL [Concomitant]

REACTIONS (4)
  - BODY HEIGHT DECREASED [None]
  - CARDIAC DISORDER [None]
  - CARDIAC PACEMAKER INSERTION [None]
  - LEUKAEMIA [None]
